FAERS Safety Report 6662147-9 (Version None)
Quarter: 2010Q1

REPORT INFORMATION
  Report Type: 
  Country: None (occurrence: None)
  Receive Date: 20100331
  Receipt Date: 20100322
  Transmission Date: 20100710
  Serious: Yes (Hospitalization)
  Sender: FDA-Public Use
  Company Number: Z0000538B

PATIENT
  Sex: Male
  Weight: 93 kg

DRUGS (1)
  1. OFATUMUMAB [Suspect]
     Indication: RHEUMATOID ARTHRITIS
     Route: 042
     Dates: start: 20080619

REACTIONS (1)
  - GINGIVAL CANCER [None]
